FAERS Safety Report 7506173-6 (Version None)
Quarter: 2011Q2

REPORT INFORMATION
  Report Type: 
  Country: None (occurrence: None)
  Receive Date: 20110526
  Receipt Date: 20110519
  Transmission Date: 20111010
  Serious: No
  Sender: FDA-Public Use
  Company Number: US-PFIZER INC-2011108667

PATIENT
  Sex: Female

DRUGS (8)
  1. NEXIUM [Concomitant]
     Dosage: 40 MG, DAILY
     Route: 048
  2. GEMFIBROZIL [Concomitant]
     Dosage: 600 MG, DAILY
  3. LORAZEPAM [Concomitant]
     Dosage: .5 MG, 3X/DAY
  4. CRESTOR [Concomitant]
     Dosage: 5 MG, UNK (10MG HALF A TABLET)
  5. LISINOPRIL [Concomitant]
     Dosage: 30 MG, DAILY
  6. LORATADINE [Concomitant]
     Indication: HYPERSENSITIVITY
     Dosage: 10 MG, AS NEEDED
     Route: 048
  7. TOPROL-XL [Concomitant]
     Dosage: 100 MG, DAILY
  8. NITROSTAT [Suspect]
     Indication: CHEST PAIN
     Dosage: 0.4 MG, DAILY
     Route: 060

REACTIONS (1)
  - DRUG INEFFECTIVE [None]
